FAERS Safety Report 6866688-0 (Version None)
Quarter: 2010Q2

REPORT INFORMATION
  Report Type: 
  Country: None (occurrence: None)
  Receive Date: 20100601
  Receipt Date: 20091221
  Transmission Date: 20101027
  Serious: No
  Sender: FDA-Public Use
  Company Number: US200911005099

PATIENT
  Age: 63 Year
  Sex: Female
  Weight: 90.7 kg

DRUGS (11)
  1. BYETTA [Suspect]
     Indication: TYPE 2 DIABETES MELLITUS
     Dosage: 5 UG, 2/D, SUBCUTANEOUS ; 5 UG, 2/D, SUBCUTANEOUS
     Route: 058
     Dates: start: 20091118, end: 20091119
  2. BYETTA [Suspect]
     Indication: TYPE 2 DIABETES MELLITUS
     Dosage: 5 UG, 2/D, SUBCUTANEOUS ; 5 UG, 2/D, SUBCUTANEOUS
     Route: 058
     Dates: start: 20090101
  3. COZAAR [Concomitant]
  4. PRO-AIR (PROCATEROL HYDROCHLORIDE) [Concomitant]
  5. HYDROCHLOROTHIAZIDE [Concomitant]
  6. SINGULAIR [Concomitant]
  7. PREMARIN (ESTROGENS CONJUGATED, MEDROGESTONE) [Concomitant]
  8. CLONAZEPAM (CLONZEPAM) [Concomitant]
  9. PREVACID [Concomitant]
  10. POTASSIUM CHLORIDE [Concomitant]
  11. AMARYL [Concomitant]

REACTIONS (4)
  - ANXIETY [None]
  - HYPERTENSION [None]
  - HYPOGLYCAEMIA [None]
  - NAUSEA [None]
